FAERS Safety Report 9012783 (Version 5)
Quarter: 2013Q4

REPORT INFORMATION
  Report Type: Report from Study
  Country: DE (occurrence: DE)
  Receive Date: 20130114
  Receipt Date: 20131209
  Transmission Date: 20140711
  Serious: Yes (Hospitalization)
  Sender: FDA-Public Use
  Company Number: DE-UCBSA-074807

PATIENT
  Age: 50 Year
  Sex: Female
  Weight: 54 kg

DRUGS (18)
  1. CERTOLIZUMAB PEGOL [Suspect]
     Indication: RHEUMATOID ARTHRITIS
     Route: 058
     Dates: start: 20120113, end: 20121101
  2. CERTOLIZUMAB PEGOL [Suspect]
     Indication: RHEUMATOID ARTHRITIS
     Route: 058
     Dates: start: 20121205
  3. METHOTREXATE [Suspect]
     Indication: RHEUMATOID ARTHRITIS
     Dosage: DOSE: 5 MG QS
     Dates: start: 20001018, end: 20120229
  4. METHOTREXATE [Suspect]
     Indication: RHEUMATOID ARTHRITIS
     Dosage: DOSE: 10 MG QS
     Dates: start: 20120301, end: 20130417
  5. METHOTREXATE [Suspect]
     Indication: RHEUMATOID ARTHRITIS
     Dosage: DOSE: 10 MG QS
     Dates: start: 20120418
  6. IBUPROFEN [Concomitant]
     Indication: RHEUMATOID ARTHRITIS
     Dosage: DOSE: 400 MG; AS NEEDED
     Route: 048
     Dates: start: 20100624
  7. PREDNISOLONE [Concomitant]
     Indication: RHEUMATOID ARTHRITIS
     Dosage: DOSE: 5 MG DAILY
     Route: 048
     Dates: start: 20101018
  8. LODOTRA [Concomitant]
     Indication: RHEUMATOID ARTHRITIS
     Dosage: 5 MG DAILY
     Route: 048
     Dates: start: 20111014
  9. DICLOFENAC [Concomitant]
     Indication: RHEUMATOID ARTHRITIS
     Route: 048
     Dates: start: 20120522
  10. NOVAMINSULFONE [Concomitant]
     Indication: RHEUMATOID ARTHRITIS
     Dosage: 500 MG; AS NEEDED
     Route: 048
     Dates: start: 20120815
  11. ETANERCEPT [Concomitant]
     Dosage: UNKNOWN DOSE
     Dates: start: 201112, end: 201201
  12. FOLIC ACID [Concomitant]
     Indication: DRUG TOLERANCE
     Dosage: DOSE: 5 MG QS
     Dates: start: 20001018
  13. MCP (METOCLOPRAMID) [Concomitant]
     Indication: DRUG TOLERANCE
     Dosage: DOSE: 4 MG QS
     Dates: start: 20111206
  14. CA2+ + VITAMINE D [Concomitant]
     Indication: OSTEOPOROSIS PROPHYLAXIS
     Dosage: DOSE: 1000/800 MG
     Dates: start: 20030725
  15. PANTOPREZOL [Concomitant]
     Indication: GASTRIC DISORDER
     Dosage: DOSE: 40 MG QOD
     Dates: start: 20080310
  16. TRIAMCINOLON [Concomitant]
     Indication: ARTHRITIS
     Dosage: DOSE: 40 MG ONCE I.A.
     Dates: start: 20120815, end: 20120815
  17. CLEXANE [Concomitant]
     Indication: THROMBOSIS PROPHYLAXIS
     Dates: start: 20121114, end: 201212
  18. CLEXANE [Concomitant]
     Indication: THROMBOSIS PROPHYLAXIS
     Dates: start: 20130705, end: 20130705

REACTIONS (2)
  - Synovitis [Not Recovered/Not Resolved]
  - Arthritis [Not Recovered/Not Resolved]
